FAERS Safety Report 6709376-3 (Version None)
Quarter: 2010Q2

REPORT INFORMATION
  Report Type: 
  Country: None (occurrence: None)
  Receive Date: 20100504
  Receipt Date: 20100422
  Transmission Date: 20101027
  Serious: Yes (Hospitalization)
  Sender: FDA-Public Use
  Company Number: PHHY2010CA25567

PATIENT
  Sex: Female

DRUGS (6)
  1. ACLASTA/ZOLEDRONATE T29581+A+ [Suspect]
     Indication: OSTEOPOROSIS
     Dosage: UNK,UNK
     Dates: start: 20100209, end: 20100214
  2. DIOVAN [Concomitant]
     Dosage: UNK,UNK
  3. HYDROCHLOROTHIAZIDE [Concomitant]
     Dosage: UNK,UNK
  4. NEXIUM [Concomitant]
     Dosage: UNK,UNK
  5. CALCIUM [Concomitant]
     Dosage: UNK,UNK
  6. VITAMIN D [Concomitant]
     Dosage: UNK,UNK

REACTIONS (11)
  - ASPARTATE AMINOTRANSFERASE ABNORMAL [None]
  - BLOOD ALBUMIN ABNORMAL [None]
  - BLOOD ALKALINE PHOSPHATASE DECREASED [None]
  - BLOOD BILIRUBIN ABNORMAL [None]
  - BLOOD CREATINE PHOSPHOKINASE DECREASED [None]
  - BLOOD CREATININE INCREASED [None]
  - HYPERSENSITIVITY [None]
  - LUNG HYPERINFLATION [None]
  - PLATELET COUNT DECREASED [None]
  - SERUM SICKNESS [None]
  - WHITE BLOOD CELL COUNT DECREASED [None]
